FAERS Safety Report 22330598 (Version 1)
Quarter: 2023Q2

REPORT INFORMATION
  Report Type: Report from Study
  Country: US (occurrence: None)
  Receive Date: 20230517
  Receipt Date: 20230517
  Transmission Date: 20230722
  Serious: Yes (Life-Threatening, Other)
  Sender: FDA-Public Use
  Company Number: US-ROCHE-3349576

PATIENT

DRUGS (12)
  1. RITUXIMAB [Suspect]
     Active Substance: RITUXIMAB
     Indication: Marginal zone lymphoma
     Dosage: 01/JAN/2017, 22/JUN/2017, 13/JUL/2017, 3/AUG/2017, 01/SEP/2017, SAME DOSAGE REGIMEN WAS GIVEN.
     Route: 041
     Dates: start: 20170511, end: 20170511
  2. CYCLOPHOSPHAMIDE [Suspect]
     Active Substance: CYCLOPHOSPHAMIDE
     Indication: Marginal zone lymphoma
     Dosage: ON 01/SEP/2017, SAME DOSAGE REGIMEN WAS GIVEN.
     Route: 065
     Dates: start: 20170515, end: 20170515
  3. CYCLOPHOSPHAMIDE [Suspect]
     Active Substance: CYCLOPHOSPHAMIDE
     Dosage: ON 26/JUN/2017, 17/JUL/2017, 07/AUG/2017, SAME DOSAGE REGIMEN WAS GIVEN.
     Route: 065
     Dates: start: 20170605, end: 20170605
  4. DOXORUBICIN [Suspect]
     Active Substance: DOXORUBICIN
     Indication: Marginal zone lymphoma
     Route: 065
     Dates: start: 20170511, end: 20170515
  5. DOXORUBICIN [Suspect]
     Active Substance: DOXORUBICIN
     Dosage: ON 22/JUN/2017, 13/JUL/2017, 03/AUG/2017 SAME DOSAGE REGIMEN WAS GIVEN.
     Route: 065
     Dates: start: 20170601, end: 20170605
  6. ETOPOSIDE [Suspect]
     Active Substance: ETOPOSIDE
     Indication: Marginal zone lymphoma
     Dosage: ON 01/SEP/2017, SAME DOSAGE REGIMEN WAS GIVEN.
     Route: 065
     Dates: start: 20170511, end: 20170515
  7. ETOPOSIDE [Suspect]
     Active Substance: ETOPOSIDE
     Dosage: ON 22/JUN/2017, 13/JUL/2017, 3/AUG/2017,SAME DOSAGE REGIMEN WAS GIVEN.
     Route: 065
     Dates: start: 20170601, end: 20170605
  8. METHOTREXATE [Suspect]
     Active Substance: METHOTREXATE
     Indication: Marginal zone lymphoma
     Dosage: ON 26/JUN/2017, 14/JUL/2017, 04/AUG/2017, 01/SEP/2017, SAME DOSAGE REGIMEN WAS GIVEN.
     Route: 065
     Dates: start: 20170623, end: 20170623
  9. PEGFILGRASTIM [Suspect]
     Active Substance: PEGFILGRASTIM
     Indication: Marginal zone lymphoma
     Dosage: ON 13/JUN/2017, 28/JUL/2017, 19/JUL/2017, 09/AUG/2017, 07/SEP/2017, SAME DOSAGE REGIMEN WAS GIVEN.
     Route: 065
     Dates: start: 20170516, end: 20170516
  10. PREDNISONE [Suspect]
     Active Substance: PREDNISONE
     Indication: Marginal zone lymphoma
     Dosage: ON , 22/JUN/2017, 13/JUL/2017, 03/AUG/2017, 01/SEP/2017, SAME DOSAGE REGIMEN WAS GIVEN.
     Route: 065
     Dates: start: 20170511, end: 20170515
  11. PREDNISONE [Suspect]
     Active Substance: PREDNISONE
     Route: 065
     Dates: start: 20170601, end: 20170605
  12. VINCRISTINE [Suspect]
     Active Substance: VINCRISTINE
     Indication: Marginal zone lymphoma
     Dosage: ON 01/JUN/2017, 22/JUN/2017, 13/JUL/2017, 19/JUL/2017, 03/AUG/2017, 01/SEP/2017, SAME DOSAGE REGIMEN
     Route: 065
     Dates: start: 20170511, end: 20170515

REACTIONS (2)
  - Sepsis [Not Recovered/Not Resolved]
  - Febrile neutropenia [Recovered/Resolved]

NARRATIVE: CASE EVENT DATE: 20170725
